FAERS Safety Report 9539941 (Version 3)
Quarter: 2014Q3

REPORT INFORMATION
  Report Type: Spontaneous
  Country: JP (occurrence: JP)
  Receive Date: 20130920
  Receipt Date: 20140929
  Transmission Date: 20150326
  Serious: Yes (Other)
  Sender: FDA-Public Use
  Company Number: JP-ASTRAZENECA-2013SE69135

PATIENT
  Sex: Male

DRUGS (6)
  1. SODIUM VALPROATE [Suspect]
     Active Substance: VALPROATE SODIUM
     Indication: CONVULSION
     Route: 048
  2. FOSPHENYTOIN [Suspect]
     Active Substance: FOSPHENYTOIN\FOSPHENYTOIN SODIUM
     Indication: CONVULSION
  3. NICARDIPINE HYDROCHLORIDE. [Concomitant]
     Active Substance: NICARDIPINE HYDROCHLORIDE
     Indication: HYPERTENSION
  4. XYLOCAINE [Suspect]
     Active Substance: LIDOCAINE HYDROCHLORIDE
     Indication: CONVULSION
  5. AMLODIPINE [Concomitant]
     Active Substance: AMLODIPINE BESYLATE
     Indication: HYPERTENSION
  6. PHENYTOIN. [Suspect]
     Active Substance: PHENYTOIN
     Indication: CONVULSION

REACTIONS (1)
  - Pancytopenia [Recovered/Resolved]
